FAERS Safety Report 9409804 (Version 1)
Quarter: 2013Q3

REPORT INFORMATION
  Report Type: Spontaneous
  Country: GB (occurrence: GB)
  Receive Date: 20130719
  Receipt Date: 20130719
  Transmission Date: 20140515
  Serious: Yes (Hospitalization)
  Sender: FDA-Public Use
  Company Number: GB-VERTEX PHARMACEUTICALS INC-2013-008086

PATIENT
  Age: 35 Year
  Sex: Male
  Weight: 70.1 kg

DRUGS (5)
  1. INCIVO [Suspect]
     Indication: HEPATITIS C
     Dosage: 750 MG, TID, TABLET
     Route: 048
  2. PEGASYS [Suspect]
     Indication: HEPATITIS C
     Dosage: 180 ?G, QW
     Route: 058
     Dates: start: 20130211
  3. REBETOL [Concomitant]
     Indication: HEPATITIS C
     Dosage: 1000 MG, QD
     Route: 048
     Dates: start: 20130211
  4. REBETOL [Concomitant]
     Dosage: 400 MG, BID
     Route: 048
  5. SUBUTEX [Concomitant]
     Indication: DRUG DEPENDENCE
     Dosage: 4 MG, QD
     Route: 048
     Dates: start: 2009

REACTIONS (2)
  - Keratitis bacterial [Recovered/Resolved]
  - Ulcerative keratitis [Recovered/Resolved]
